FAERS Safety Report 4715205-X (Version None)
Quarter: 2005Q2

REPORT INFORMATION
  Report Type: 
  Country: None (occurrence: None)
  Receive Date: 20050630
  Receipt Date: 20050519
  Transmission Date: 20051028
  Serious: No
  Sender: FDA-Public Use
  Company Number: 214722

PATIENT
  Age: 54 Year
  Sex: Female

DRUGS (1)
  1. AVASTIN [Suspect]
     Indication: COLORECTAL CANCER METASTATIC
     Dosage: 5 MG/KG, Q2W, UNK
     Route: 065

REACTIONS (3)
  - FLATULENCE [None]
  - FREQUENT BOWEL MOVEMENTS [None]
  - MYALGIA [None]
